FAERS Safety Report 6686922-X (Version None)
Quarter: 2010Q2

REPORT INFORMATION
  Report Type: 
  Country: None (occurrence: None)
  Receive Date: 20100419
  Receipt Date: 20100406
  Transmission Date: 20101027
  Serious: Yes (Other)
  Sender: FDA-Public Use
  Company Number: PHHY2010GB22794

PATIENT
  Sex: Female

DRUGS (5)
  1. CLOZARIL [Suspect]
     Indication: SCHIZOPHRENIA
     Dosage: UNK
     Dates: start: 20061221, end: 20100101
  2. AZATHIOPRINE [Concomitant]
     Indication: INFLAMMATORY BOWEL DISEASE
  3. BUDESONIDE [Concomitant]
     Indication: INFLAMMATORY BOWEL DISEASE
  4. IMMUNOSUPPRESSANTS [Concomitant]
  5. STEROIDS NOS [Concomitant]

REACTIONS (1)
  - CROHN'S DISEASE [None]
